FAERS Safety Report 16881190 (Version 3)
Quarter: 2022Q2

REPORT INFORMATION
  Report Type: Report from Study
  Country: JP (occurrence: None)
  Receive Date: 20191003
  Receipt Date: 20220623
  Transmission Date: 20220720
  Serious: Yes (Other)
  Sender: FDA-Public Use
  Company Number: JP-ROCHE-2417566

PATIENT
  Age: 56 Year
  Sex: Female
  Weight: 41 kg

DRUGS (22)
  1. ATEZOLIZUMAB [Suspect]
     Active Substance: ATEZOLIZUMAB
     Indication: Ovarian epithelial cancer
     Dosage: DATE OF MOST RECENT DOSE OF ATEZOLIZUMAB PRIOR TO SAE ONSET WAS ON 31/JUL/2018.
     Route: 041
     Dates: start: 20180619
  2. CARBOPLATIN [Suspect]
     Active Substance: CARBOPLATIN
     Indication: Ovarian epithelial cancer
     Dosage: DATE OF MOST RECENT DOSE OF CARBOPLATIN PRIOR TO SAE ONSET WAS 559 MG ON 2/OCT/2018,?CARBOPLATIN AT
     Route: 042
     Dates: start: 20180619
  3. BEVACIZUMAB [Suspect]
     Active Substance: BEVACIZUMAB
     Indication: Ovarian epithelial cancer
     Dosage: DATE OF MOST RECENT DOSE OF BEVACIZUMAB PRIOR TO SAE ONSET WAS 714 MG ON 02/OCT/2018
     Route: 042
     Dates: start: 20180710
  4. PACLITAXEL [Suspect]
     Active Substance: PACLITAXEL
     Indication: Ovarian epithelial cancer
     Dosage: DATE OF MOST RECENT DOSE (252.9 MG) OF PACLITAXEL PRIOR TO SAE ONSET: 02/OCT/2018
     Route: 042
     Dates: start: 20180619
  5. RINDERON VG [Concomitant]
     Active Substance: BETAMETHASONE VALERATE\GENTAMICIN SULFATE
     Indication: Dermatitis acneiform
     Dosage: 0.12 OTHER
     Route: 061
     Dates: start: 20180810
  6. BROTIZOLAM [Concomitant]
     Active Substance: BROTIZOLAM
     Indication: Insomnia
     Dates: start: 20180530
  7. FEXOFENADINE [Concomitant]
     Active Substance: FEXOFENADINE HYDROCHLORIDE
     Indication: Rhinitis allergic
     Dates: start: 20180604
  8. MAGNESIUM OXIDE [Concomitant]
     Active Substance: MAGNESIUM OXIDE
     Indication: Constipation
     Dates: start: 20180607
  9. CELECOXIB [Concomitant]
     Active Substance: CELECOXIB
     Indication: Abdominal pain
     Dates: start: 20180530
  10. CALONAL [Concomitant]
     Active Substance: ACETAMINOPHEN
     Indication: Headache
     Dates: start: 20180601
  11. SENNOSIDES [Concomitant]
     Active Substance: SENNOSIDES
     Indication: Constipation
     Dates: start: 20180526
  12. SODIUM GUALENATE MONOHYDRATE [Concomitant]
     Active Substance: SODIUM GUALENATE MONOHYDRATE
     Indication: Mucosal infection
     Dates: start: 20180629
  13. POSTERISAN FORTE [Concomitant]
     Indication: Anal inflammation
     Dates: start: 20180823
  14. OLANZAPINE [Concomitant]
     Active Substance: OLANZAPINE
     Indication: Nausea
     Dates: start: 20180825
  15. KETOPROFEN [Concomitant]
     Active Substance: KETOPROFEN
     Indication: Peripheral sensory neuropathy
     Dates: start: 20181002
  16. LOPERAMIDE HYDROCHLORIDE [Concomitant]
     Active Substance: LOPERAMIDE HYDROCHLORIDE
     Indication: Colitis
     Dates: start: 20181011
  17. SULFAMETHOXAZOLE\TRIMETHOPRIM [Concomitant]
     Active Substance: SULFAMETHOXAZOLE\TRIMETHOPRIM
     Indication: Colitis
     Dates: start: 20181017
  18. NEXIUM [Concomitant]
     Active Substance: ESOMEPRAZOLE MAGNESIUM
     Indication: Gastrointestinal disorder prophylaxis
     Dates: start: 20181017
  19. AZUNOL [Concomitant]
     Indication: Anal erosion
     Dates: start: 20181011
  20. PENTOSAN POLYSULFATE SODIUM [Concomitant]
     Active Substance: PENTOSAN POLYSULFATE SODIUM
     Indication: Dry skin
     Dates: start: 20181017
  21. PREDONINE [Concomitant]
     Active Substance: PREDNISOLONE
     Indication: Colitis
     Route: 048
     Dates: start: 20181030, end: 20190328
  22. LEVOTHYROXINE [Concomitant]
     Active Substance: LEVOTHYROXINE
     Indication: Hypothyroidism
     Dates: start: 20181128

REACTIONS (1)
  - Secondary adrenocortical insufficiency [Recovering/Resolving]

NARRATIVE: CASE EVENT DATE: 20190421
